FAERS Safety Report 6115564-X (Version None)
Quarter: 2009Q1

REPORT INFORMATION
  Report Type: 
  Country: None (occurrence: None)
  Receive Date: 20090313
  Receipt Date: 20090303
  Transmission Date: 20090719
  Serious: Yes (Hospitalization)
  Sender: FDA-Public Use
  Company Number: PHHY2009GB06921

PATIENT
  Sex: Male

DRUGS (2)
  1. CLOZARIL [Suspect]
     Indication: SCHIZOPHRENIA
     Dosage: 500 MG DAILY
     Dates: start: 20080515, end: 20090217
  2. OMEPRAZOLE [Concomitant]
     Dosage: 20 MG DAILY
     Route: 048

REACTIONS (2)
  - ILEOSTOMY [None]
  - INTESTINAL PERFORATION [None]
